FAERS Safety Report 6909989-X (Version None)
Quarter: 2010Q3

REPORT INFORMATION
  Report Type: 
  Country: None (occurrence: None)
  Receive Date: 20100806
  Receipt Date: 20100726
  Transmission Date: 20110219
  Serious: No
  Sender: FDA-Public Use
  Company Number: US-BIOGENIDEC-2010BI025349

PATIENT
  Age: 51 Year
  Sex: Female

DRUGS (3)
  1. AVONEX [Suspect]
     Indication: MULTIPLE SCLEROSIS
     Route: 030
     Dates: start: 20100101
  2. ZOCOR [Concomitant]
     Indication: BLOOD CHOLESTEROL INCREASED
     Route: 048
     Dates: end: 20100701
  3. VICODIN [Concomitant]
     Indication: OSTEOPOROSIS

REACTIONS (5)
  - BONE PAIN [None]
  - CONTUSION [None]
  - DRUG INTOLERANCE [None]
  - HEMICEPHALALGIA [None]
  - INJECTION SITE PAIN [None]
